FAERS Safety Report 11442345 (Version 1)
Quarter: 2015Q3

REPORT INFORMATION
  Report Type: Spontaneous
  Country: US (occurrence: US)
  Receive Date: 20150901
  Receipt Date: 20150901
  Transmission Date: 20151125
  Serious: No
  Sender: FDA-Public Use
  Company Number: US-BAYER-2015-411960

PATIENT
  Age: 34 Year
  Sex: Male

DRUGS (1)
  1. ULTRAVIST [Suspect]
     Active Substance: IOPROMIDE
     Indication: SCAR
     Dosage: 100 ML, ONCE
     Route: 042
     Dates: start: 20150828, end: 20150828

REACTIONS (3)
  - Pruritus [None]
  - Urticaria [None]
  - Product use issue [None]

NARRATIVE: CASE EVENT DATE: 20150828
